FAERS Safety Report 12905529 (Version 3)
Quarter: 2019Q2

REPORT INFORMATION
  Report Type: Report from Study
  Country: SE (occurrence: SE)
  Receive Date: 20161103
  Receipt Date: 20190401
  Transmission Date: 20190711
  Serious: Yes (Other)
  Sender: FDA-Public Use
  Company Number: SE-ROCHE-1837843

PATIENT

DRUGS (1)
  1. RITUXIMAB. [Suspect]
     Active Substance: RITUXIMAB
     Indication: MULTIPLE SCLEROSIS
     Dosage: 500 OR 1,000 MG EVERY 6-12 MONTHS, IN SOME CASES AFTER AN INITIAL HIGHER DOSE TREATMENT COURSE (1,00
     Route: 042

REACTIONS (30)
  - Palmoplantar pustulosis [Recovered/Resolved]
  - Chills [Unknown]
  - Genital herpes [Unknown]
  - Sinusitis [Unknown]
  - Abscess intestinal [Unknown]
  - Arthralgia [Recovered/Resolved]
  - Hypersensitivity [Recovered/Resolved]
  - Kidney infection [Unknown]
  - Depression [Unknown]
  - Pyelonephritis [Unknown]
  - Appendicitis [Unknown]
  - Bronchitis [Unknown]
  - Off label use [Unknown]
  - Product use in unapproved indication [Unknown]
  - Erysipelas [Unknown]
  - Tubulointerstitial nephritis [Unknown]
  - Headache [Unknown]
  - Enteritis [Unknown]
  - Herpes zoster [Unknown]
  - Nausea [Unknown]
  - Pneumonia [Unknown]
  - Basal cell carcinoma [Unknown]
  - Lung infiltration [Recovered/Resolved]
  - Cough [Unknown]
  - Ear infection [Unknown]
  - Herpes virus infection [Unknown]
  - Pyoderma gangrenosum [Unknown]
  - Sepsis [Unknown]
  - Gastroenteritis [Unknown]
  - Malaise [Unknown]
